FAERS Safety Report 6769119-4 (Version None)
Quarter: 2010Q2

REPORT INFORMATION
  Report Type: 
  Country: None (occurrence: None)
  Receive Date: 20100603
  Receipt Date: 20100528
  Transmission Date: 20101027
  Serious: Yes (Other)
  Sender: FDA-Public Use
  Company Number: 2010SP023693

PATIENT
  Age: 48 Year
  Sex: Female
  Weight: 60 kg

DRUGS (7)
  1. ROCURONIUM BROMIDE [Suspect]
     Indication: NEUROMUSCULAR BLOCKING THERAPY
     Dosage: 40 MG;
     Dates: start: 20100422
  2. FENTANYL (CON.) [Concomitant]
  3. PROPOFOL (CON.) [Concomitant]
  4. SUXAMETHONIUM (CON.) [Concomitant]
  5. MIDAZOLAM (CON.) [Concomitant]
  6. EPHEDRINE (CON.) [Concomitant]
  7. PHENYLEPHRINE (CON.) [Concomitant]

REACTIONS (4)
  - HYPOTHERMIA [None]
  - NEUROMUSCULAR BLOCK PROLONGED [None]
  - POST PROCEDURAL COMPLICATION [None]
  - PRODUCT QUALITY ISSUE [None]
